FAERS Safety Report 5324374-2 (Version None)
Quarter: 2007Q2

REPORT INFORMATION
  Report Type: 
  Country: None (occurrence: None)
  Receive Date: 20070514
  Receipt Date: 20070502
  Transmission Date: 20071010
  Serious: Yes (Other)
  Sender: FDA-Public Use
  Company Number: MA-PFIZER INC-2007035469

PATIENT
  Age: 5 Year
  Sex: Female
  Weight: 21 kg

DRUGS (4)
  1. AZIMAX [Suspect]
     Route: 048
     Dates: start: 20070422, end: 20070423
  2. MAXILASE [Concomitant]
     Route: 048
  3. DESLORATADINE [Concomitant]
     Route: 048
  4. SERETIDE [Concomitant]
     Route: 048

REACTIONS (2)
  - RASH [None]
  - TOXIC SKIN ERUPTION [None]
